FAERS Safety Report 5246519-5 (Version None)
Quarter: 2007Q1

REPORT INFORMATION
  Report Type: 
  Country: None (occurrence: None)
  Receive Date: 20070226
  Receipt Date: 20060512
  Transmission Date: 20070707
  Serious: No
  Sender: FDA-Public Use
  Company Number: US-GLAXOSMITHKLINE-A0605398A

PATIENT
  Age: 73 Year
  Sex: Female

DRUGS (3)
  1. ALKERAN [Suspect]
     Dosage: 4MG PER DAY
     Route: 048
     Dates: start: 20060301, end: 20060426
  2. LOPRESSOR [Concomitant]
  3. REVLIMID [Concomitant]

REACTIONS (3)
  - DIARRHOEA [None]
  - DRUG INEFFECTIVE [None]
  - DYSPEPSIA [None]
